FAERS Safety Report 6489791-6 (Version None)
Quarter: 2009Q4

REPORT INFORMATION
  Report Type: 
  Country: None (occurrence: None)
  Receive Date: 20091211
  Receipt Date: 20091209
  Transmission Date: 20100525
  Serious: Yes (Other)
  Sender: FDA-Public Use
  Company Number: US-ASTRAZENECA-2007UW14017

PATIENT
  Age: 76 Year
  Sex: Female
  Weight: 89.8 kg

DRUGS (12)
  1. SEROQUEL [Suspect]
     Indication: DEPRESSION
     Route: 048
     Dates: start: 20010801, end: 20060101
  2. SEROQUEL [Suspect]
     Dosage: 100 MG FOUR TIMES A DAY
     Route: 048
     Dates: start: 20070919
  3. ACETAMINOPHEN [Concomitant]
     Indication: PAIN
     Route: 048
     Dates: start: 20050103
  4. FENOFIBRATE [Concomitant]
     Indication: DYSLIPIDAEMIA
     Route: 048
     Dates: start: 20070108
  5. BUMETANIDE [Concomitant]
     Indication: OEDEMA
     Route: 048
     Dates: start: 20071103
  6. LISINOPRIL [Concomitant]
     Indication: CARDIAC FAILURE CONGESTIVE
     Route: 048
     Dates: start: 20071018
  7. DIGITEK [Concomitant]
     Route: 048
     Dates: start: 20071011
  8. EFFEXOR XR [Concomitant]
     Indication: DEPRESSION
     Route: 048
     Dates: start: 20071013
  9. GLUCOSAMINE SULFATE [Concomitant]
     Route: 048
  10. WARFARIN SODIUM [Concomitant]
     Dosage: 5 MG 1 TABLET 6 TIMES WEEKLY THEN 2.5 MG ONCE A WEEK
     Route: 048
     Dates: start: 20071004
  11. SPIRONOLACTONE [Concomitant]
     Indication: OEDEMA
     Dosage: 25 MG HALF TABLET EVERY MORNING
     Route: 048
     Dates: start: 20071011
  12. CARVEDILOL [Concomitant]
     Indication: CARDIAC FAILURE CONGESTIVE
     Route: 048

REACTIONS (3)
  - SHOULDER ARTHROPLASTY [None]
  - SKIN NEOPLASM EXCISION [None]
  - TYPE 2 DIABETES MELLITUS [None]
